FAERS Safety Report 5369877-X (Version None)
Quarter: 2007Q2

REPORT INFORMATION
  Report Type: 
  Country: None (occurrence: None)
  Receive Date: 20070625
  Receipt Date: 20070611
  Transmission Date: 20071010
  Serious: Yes (Death)
  Sender: FDA-Public Use
  Company Number: US-GENENTECH-242820

PATIENT
  Sex: Female

DRUGS (2)
  1. HERCEPTIN [Suspect]
     Indication: METASTATIC NEOPLASM
     Dosage: UNK, UNK
     Dates: start: 20070101
  2. LAPATINIB [Suspect]
     Indication: METASTATIC NEOPLASM
     Dates: start: 20070101

REACTIONS (2)
  - DEATH [None]
  - DISEASE PROGRESSION [None]
